FAERS Safety Report 18115138 (Version 3)
Quarter: 2022Q3

REPORT INFORMATION
  Report Type: Report from Study
  Country: CA (occurrence: CA)
  Receive Date: 20200805
  Receipt Date: 20220922
  Transmission Date: 20221026
  Serious: Yes (Life-Threatening, Other)
  Sender: FDA-Public Use
  Company Number: CA-PFIZER INC-2020295819

PATIENT
  Age: 40 Year
  Sex: Female

DRUGS (12)
  1. GABAPENTIN [Interacting]
     Active Substance: GABAPENTIN
     Indication: Migraine
     Dosage: 600 MG
     Route: 065
  2. GABAPENTIN [Interacting]
     Active Substance: GABAPENTIN
     Dosage: 600 MG
     Route: 065
  3. GABAPENTIN [Interacting]
     Active Substance: GABAPENTIN
     Dosage: 300 MG
     Route: 065
  4. GABAPENTIN [Interacting]
     Active Substance: GABAPENTIN
     Dosage: 900 MG, 1X/DAY
     Route: 065
  5. AIMOVIG [Interacting]
     Active Substance: ERENUMAB-AOOE
     Indication: Migraine
     Dosage: UNK
     Route: 065
  6. AIMOVIG [Interacting]
     Active Substance: ERENUMAB-AOOE
     Dosage: UNK
     Route: 065
  7. AIMOVIG [Interacting]
     Active Substance: ERENUMAB-AOOE
     Dosage: 140 MG, MONTHLY
     Route: 058
  8. TOPAMAX [Interacting]
     Active Substance: TOPIRAMATE
     Dosage: UNK
     Route: 065
  9. ZOPICLONE [Interacting]
     Active Substance: ZOPICLONE
     Dosage: UNK
     Route: 065
  10. TOPIRAMATE [Suspect]
     Active Substance: TOPIRAMATE
     Dosage: 75 MG
     Route: 065
  11. TOPIRAMATE [Suspect]
     Active Substance: TOPIRAMATE
     Dosage: UNK
     Route: 065
  12. PANTOPRAZOLE [Concomitant]
     Active Substance: PANTOPRAZOLE
     Route: 065

REACTIONS (17)
  - Amnesia [Recovered/Resolved]
  - Aphasia [Recovered/Resolved]
  - Blood pressure increased [Recovered/Resolved]
  - Diarrhoea [Recovered/Resolved]
  - Drug interaction [Recovered/Resolved]
  - Feeling hot [Recovered/Resolved]
  - Hyperhidrosis [Recovered/Resolved]
  - Mental impairment [Recovered/Resolved]
  - Drug ineffective [Recovered/Resolved]
  - Panic attack [Recovered/Resolved]
  - Gastrointestinal haemorrhage [Recovered/Resolved]
  - Constipation [Recovered/Resolved]
  - Epigastric discomfort [Recovered/Resolved]
  - Feeling abnormal [Recovered/Resolved]
  - Osteitis [Recovered/Resolved]
  - Peptic ulcer perforation [Recovered/Resolved]
  - Sepsis [Recovered/Resolved]
